FAERS Safety Report 6645073-0 (Version None)
Quarter: 2010Q1

REPORT INFORMATION
  Report Type: 
  Country: None (occurrence: None)
  Receive Date: 20100319
  Receipt Date: 20100319
  Transmission Date: 20100710
  Serious: Yes (Other)
  Sender: FDA-Public Use
  Company Number: None

PATIENT
  Age: 62 Year
  Sex: Male
  Weight: 71.6683 kg

DRUGS (1)
  1. LISINOPRIL [Suspect]
     Indication: HYPERTENSION
     Dosage: SIG HALF TABLET SIG 1 DAILY PO
     Route: 048
     Dates: start: 20070201, end: 20080127

REACTIONS (6)
  - COUGH [None]
  - HYPERTENSION [None]
  - INFLUENZA [None]
  - NASOPHARYNGITIS [None]
  - PNEUMONIA [None]
  - VITAL CAPACITY DECREASED [None]
